FAERS Safety Report 10881178 (Version 3)
Quarter: 2015Q2

REPORT INFORMATION
  Report Type: Spontaneous
  Country: SE (occurrence: None)
  Receive Date: 20150226
  Receipt Date: 20150515
  Transmission Date: 20150821
  Serious: Yes (Hospitalization)
  Sender: FDA-Public Use
  Company Number: SE-2015VAL000167

PATIENT
  Age: 74 Year
  Sex: Male
  Weight: 82.7 kg

DRUGS (2)
  1. RLX030 VS PLACEBO (CODE OT BROKEN) (INVESTIGATIONAL DRUG) [Suspect]
     Active Substance: SERELAXIN
     Indication: CARDIAC FAILURE ACUTE
     Dosage: CODE NOT BROKEN, INTRAVENOUS
     Route: 042
     Dates: start: 20141104, end: 20141106
  2. METOPROLOL TARTRATE (METOPROLOL TARTRATE) UNKNOWN [Suspect]
     Active Substance: METOPROLOL TARTRATE
     Indication: CARDIAC FAILURE
     Dates: start: 20140117, end: 20141105

REACTIONS (2)
  - Sinus node dysfunction [None]
  - Cardiac failure [None]

NARRATIVE: CASE EVENT DATE: 20141104
